FAERS Safety Report 9677207 (Version 1)
Quarter: 2013Q4

REPORT INFORMATION
  Report Type: Spontaneous
  Country: US (occurrence: None)
  Receive Date: 20131107
  Receipt Date: 20131107
  Transmission Date: 20140711
  Serious: No
  Sender: FDA-Public Use
  Company Number: None

PATIENT
  Sex: Female
  Weight: 58.97 kg

DRUGS (7)
  1. HALOPERIDOL [Suspect]
     Indication: BIPOLAR DISORDER
     Dosage: 5MG + 1MG  1 PILL AT BEDTIME BY MOUTH
     Route: 048
     Dates: start: 201203, end: 201310
  2. BUSPIRONE HCL [Concomitant]
  3. GABAPENTIN [Concomitant]
  4. TRAZADONE [Concomitant]
  5. CELEBREX [Concomitant]
  6. TOPIRAMATE [Concomitant]
  7. OXYCODONE  ACETOMINOPHEN 10-325 [Concomitant]

REACTIONS (2)
  - Brain injury [None]
  - Abnormal behaviour [None]
